FAERS Safety Report 4471301-6 (Version None)
Quarter: 2004Q4

REPORT INFORMATION
  Report Type: 
  Country: None (occurrence: None)
  Receive Date: 20041011
  Receipt Date: 20041001
  Transmission Date: 20050328
  Serious: Yes (Life-Threatening, Hospitalization, Disabling)
  Sender: FDA-Public Use
  Company Number: US-MERCK-0410USA00292

PATIENT
  Sex: Female

DRUGS (2)
  1. VIOXX [Suspect]
     Indication: ARTHRITIS
     Route: 048
     Dates: start: 20031201, end: 20040930
  2. VIOXX [Suspect]
     Route: 048
     Dates: start: 20020101, end: 20031201

REACTIONS (2)
  - MYOCARDIAL INFARCTION [None]
  - WEIGHT DECREASED [None]
